FAERS Safety Report 9716517 (Version 1)
Quarter: 2013Q4

REPORT INFORMATION
  Report Type: Spontaneous
  Country: US (occurrence: US)
  Receive Date: 20131127
  Receipt Date: 20131127
  Transmission Date: 20140711
  Serious: No
  Sender: FDA-Public Use
  Company Number: US-PFIZER INC-2013335684

PATIENT
  Age: 52 Year
  Sex: Male
  Weight: 88.44 kg

DRUGS (2)
  1. VIAGRA [Suspect]
     Dosage: UNK, 1X/DAY
     Dates: start: 20131117
  2. GABAPENTIN [Concomitant]
     Dosage: 400 MG, 3X/DAY

REACTIONS (1)
  - Drug ineffective [Unknown]
